FAERS Safety Report 4795367-9 (Version None)
Quarter: 2005Q4

REPORT INFORMATION
  Report Type: 
  Country: None (occurrence: None)
  Receive Date: 20051006
  Receipt Date: 20050921
  Transmission Date: 20060501
  Serious: Yes (Hospitalization, Other)
  Sender: FDA-Public Use
  Company Number: 2005-0008590

PATIENT
  Age: 44 Year
  Sex: Male
  Weight: 60 kg

DRUGS (7)
  1. VIREAD [Suspect]
     Indication: HIV INFECTION
     Dosage: 300 MG, 1 IN 1 D, ORAL
     Route: 048
     Dates: start: 20030301, end: 20050801
  2. ATAZANAVIR (ATAZANAVIR) [Concomitant]
  3. NEVIRAPINE (NEVIRAPINE) [Concomitant]
  4. RITONAVIR (RITONAVIR [Concomitant]
  5. HYDROCHLOROTHIAZIDE [Concomitant]
  6. INSULIN [Concomitant]
  7. IRBESARTAN [Concomitant]

REACTIONS (8)
  - ABDOMINAL PAIN [None]
  - BACK PAIN [None]
  - BLOOD CREATININE INCREASED [None]
  - FANCONI SYNDROME [None]
  - HAEMATURIA [None]
  - NEPHROLITHIASIS [None]
  - PROTEINURIA [None]
  - RENAL TUBULAR DISORDER [None]
